FAERS Safety Report 9533661 (Version 1)
Quarter: 2013Q3

REPORT INFORMATION
  Report Type: Spontaneous
  Country: CA (occurrence: CA)
  Receive Date: 20130918
  Receipt Date: 20130918
  Transmission Date: 20140515
  Serious: Yes (Hospitalization, Disabling, Other)
  Sender: FDA-Public Use
  Company Number: CA-009507513-1309CAN008170

PATIENT
  Age: 37 Year
  Sex: Female

DRUGS (3)
  1. VICTRELIS [Suspect]
     Indication: PRODUCT USED FOR UNKNOWN INDICATION
     Dosage: UNK
     Route: 065
  2. CITALOPRAM [Concomitant]
     Indication: PRODUCT USED FOR UNKNOWN INDICATION
     Route: 065
  3. PEGINTERFERON ALFA-2B (+) RIBAVIRIN [Concomitant]
     Indication: PRODUCT USED FOR UNKNOWN INDICATION
     Route: 065

REACTIONS (8)
  - Aggression [Recovering/Resolving]
  - Anxiety [Recovering/Resolving]
  - Catatonia [Recovering/Resolving]
  - Condition aggravated [Recovering/Resolving]
  - Hallucinations, mixed [Recovering/Resolving]
  - Paranoia [Recovering/Resolving]
  - Sleep disorder [Recovering/Resolving]
  - Speech disorder [Recovering/Resolving]
